FAERS Safety Report 12432402 (Version 2)
Quarter: 2016Q2

REPORT INFORMATION
  Report Type: Spontaneous
  Country: US (occurrence: US)
  Receive Date: 20160603
  Receipt Date: 20160614
  Transmission Date: 20160815
  Serious: Yes (Other)
  Sender: FDA-Public Use
  Company Number: US-GLAXOSMITHKLINE-US2016GSK079218

PATIENT
  Sex: Female

DRUGS (4)
  1. PROVENTIL [Suspect]
     Active Substance: ALBUTEROL
     Indication: NASOPHARYNGITIS
     Dosage: UNK, U
  2. ALBUTEROL. [Suspect]
     Active Substance: ALBUTEROL
     Indication: ASTHMA
     Dosage: UNK, U
  3. PROVENTIL [Suspect]
     Active Substance: ALBUTEROL
     Indication: BRONCHITIS
  4. PROVENTIL [Suspect]
     Active Substance: ALBUTEROL
     Indication: INFLUENZA

REACTIONS (14)
  - Asthma [Unknown]
  - Coma [Recovered/Resolved]
  - Dyspnoea [Unknown]
  - Bronchitis [Unknown]
  - Drug ineffective [Not Recovered/Not Resolved]
  - Pneumonia [Unknown]
  - Anxiety [Unknown]
  - Road traffic accident [Unknown]
  - Vocal cord polyp [Not Recovered/Not Resolved]
  - Off label use [Unknown]
  - Insomnia [Unknown]
  - Nasopharyngitis [Unknown]
  - Tracheostomy [Unknown]
  - Influenza [Unknown]
